FAERS Safety Report 5283574-0 (Version None)
Quarter: 2007Q2

REPORT INFORMATION
  Report Type: 
  Country: None (occurrence: None)
  Receive Date: 20070402
  Receipt Date: 20070321
  Transmission Date: 20071010
  Serious: Yes (Other)
  Sender: FDA-Public Use
  Company Number: BE-ROCHE-486534

PATIENT
  Age: 18 Year
  Sex: Female
  Weight: 53 kg

DRUGS (3)
  1. ROACCUTANE [Suspect]
     Dosage: DOSAGE REPORTED AS 50 MG ONE DAY, 25 MG THE OTHER DAY (ALTERNATING).
     Route: 048
     Dates: start: 20070115, end: 20070309
  2. CONTRACEPTIVE [Concomitant]
     Dosage: REPORTED AS DESORELL 20 (150 UG DESOGESTREL + 20 UG GETHINYLESTRADIOL).
     Route: 048
     Dates: start: 20061115
  3. MINOCYCLINE HCL [Concomitant]
     Indication: ACNE
     Dosage: STOP DATE REPORTED AS 2006.
     Route: 048
     Dates: start: 20060815

REACTIONS (1)
  - NO ADVERSE EFFECT [None]
